FAERS Safety Report 23611105 (Version 2)
Quarter: 2024Q1

REPORT INFORMATION
  Report Type: Spontaneous
  Country: ES (occurrence: ES)
  Receive Date: 20240308
  Receipt Date: 20240315
  Transmission Date: 20240409
  Serious: Yes (Death, Hospitalization)
  Sender: FDA-Public Use
  Company Number: ES-002147023-NVSC2022ES159686

PATIENT
  Age: 62 Year
  Sex: Male

DRUGS (6)
  1. CYCLOSPORINE [Suspect]
     Active Substance: CYCLOSPORINE
     Indication: Lung transplant
     Dosage: UNK
     Route: 065
  2. CYCLOSPORINE [Suspect]
     Active Substance: CYCLOSPORINE
     Indication: Immunosuppressant drug therapy
  3. MYCOPHENOLATE MOFETIL [Suspect]
     Active Substance: MYCOPHENOLATE MOFETIL
     Indication: Lung transplant
     Dosage: UNK
     Route: 065
  4. MYCOPHENOLATE MOFETIL [Suspect]
     Active Substance: MYCOPHENOLATE MOFETIL
     Indication: Immunosuppressant drug therapy
  5. TACROLIMUS [Suspect]
     Active Substance: TACROLIMUS
     Indication: Lung transplant
     Dosage: UNK
     Route: 065
  6. TACROLIMUS [Suspect]
     Active Substance: TACROLIMUS
     Indication: Immunosuppressant drug therapy

REACTIONS (12)
  - Meningitis cryptococcal [Fatal]
  - Drug ineffective [Fatal]
  - Cerebrovascular accident [Unknown]
  - Cerebral infarction [Unknown]
  - Intracranial pressure increased [Unknown]
  - Neurotoxicity [Unknown]
  - Cryptococcosis [Unknown]
  - Hemiparesis [Unknown]
  - Facial paralysis [Unknown]
  - Encephalitis [Unknown]
  - Central nervous system vasculitis [Unknown]
  - Product use in unapproved indication [Unknown]
